FAERS Safety Report 5058127-X (Version None)
Quarter: 2006Q3

REPORT INFORMATION
  Report Type: 
  Country: None (occurrence: None)
  Receive Date: 20060721
  Receipt Date: 20060710
  Transmission Date: 20061208
  Serious: Yes (Other)
  Sender: FDA-Public Use
  Company Number: JP-JPN-A200602565

PATIENT
  Age: 67 Year
  Sex: Male

DRUGS (2)
  1. VALTREX [Suspect]
     Indication: HERPES ZOSTER
     Dosage: 1000MG THREE TIMES PER DAY
     Route: 048
     Dates: start: 20060629, end: 20060629
  2. METOCLOPRAMIDE [Concomitant]
     Route: 030
     Dates: start: 20060629

REACTIONS (7)
  - LOSS OF CONSCIOUSNESS [None]
  - NAUSEA [None]
  - PAIN [None]
  - RASH [None]
  - SNORING [None]
  - SOMNOLENCE [None]
  - VOMITING [None]
